FAERS Safety Report 25751185 (Version 1)
Quarter: 2025Q3

REPORT INFORMATION
  Report Type: Spontaneous
  Country: US (occurrence: None)
  Receive Date: 20250830
  Receipt Date: 20250830
  Transmission Date: 20251020
  Serious: No
  Sender: FDA-CTU
  Company Number: None

PATIENT
  Sex: Female

DRUGS (1)
  1. LENALIDOMIDE [Suspect]
     Active Substance: LENALIDOMIDE
     Indication: Plasma cell myeloma
     Route: 048
     Dates: start: 20240702

REACTIONS (10)
  - Neuropathy peripheral [None]
  - Paraesthesia [None]
  - Limb discomfort [None]
  - Limb discomfort [None]
  - Hypoaesthesia [None]
  - Hypoaesthesia [None]
  - Fatigue [None]
  - Loss of personal independence in daily activities [None]
  - Diarrhoea [None]
  - Abnormal faeces [None]
